FAERS Safety Report 4672855-7 (Version None)
Quarter: 2005Q2

REPORT INFORMATION
  Report Type: 
  Country: None (occurrence: None)
  Receive Date: 20050523
  Receipt Date: 20050511
  Transmission Date: 20051028
  Serious: Yes (Hospitalization, Other)
  Sender: FDA-Public Use
  Company Number: 2005SS000023

PATIENT
  Age: 30 Year
  Sex: Female

DRUGS (3)
  1. MYOBLOC [Suspect]
     Indication: SKIN WRINKLING
     Dosage: 5000 UNITS; X1; IM
     Route: 030
     Dates: start: 20050503, end: 20050503
  2. XYLOCAINE [Concomitant]
  3. ANAESTHETICS, GENERAL [Concomitant]

REACTIONS (4)
  - CARDIAC FAILURE CONGESTIVE [None]
  - FLUID RETENTION [None]
  - HYSTERECTOMY [None]
  - POST PROCEDURAL COMPLICATION [None]
